FAERS Safety Report 8219792-9 (Version None)
Quarter: 2012Q1

REPORT INFORMATION
  Report Type: 
  Country: None (occurrence: None)
  Receive Date: 20120319
  Receipt Date: 20120307
  Transmission Date: 20120608
  Serious: Yes (Other)
  Sender: FDA-Public Use
  Company Number: JP-BRISTOL-MYERS SQUIBB COMPANY-16454803

PATIENT
  Age: 57 Year
  Sex: Female

DRUGS (2)
  1. IRINOTECAN HCL [Concomitant]
     Indication: RECTAL CANCER
     Route: 042
  2. ERBITUX [Suspect]
     Indication: RECTAL CANCER
     Route: 042

REACTIONS (2)
  - SMALL INTESTINAL PERFORATION [None]
  - ABSCESS [None]
